FAERS Safety Report 8999840 (Version 1)
Quarter: 2013Q1

REPORT INFORMATION
  Report Type: Report from Study
  Country: CA (occurrence: CA)
  Receive Date: 20130102
  Receipt Date: 20130102
  Transmission Date: 20140127
  Serious: Yes (Hospitalization)
  Sender: FDA-Public Use
  Company Number: CA-JNJFOC-20121213626

PATIENT
  Age: 50 Year
  Sex: Female

DRUGS (7)
  1. REMICADE [Suspect]
     Indication: CROHN^S DISEASE
     Route: 042
  2. ACTONEL [Concomitant]
     Route: 065
  3. CALCIUM [Concomitant]
     Route: 065
  4. AZATHIOPRINE [Concomitant]
     Route: 065
  5. ESTROGEN [Concomitant]
     Route: 065
  6. VITAMIN D [Concomitant]
     Route: 065
  7. PROMETRIUM [Concomitant]
     Route: 065

REACTIONS (3)
  - Renal colic [Recovered/Resolved]
  - Cholelithiasis [Unknown]
  - Blood urine present [Recovered/Resolved]
